FAERS Safety Report 6508469-3 (Version None)
Quarter: 2009Q4

REPORT INFORMATION
  Report Type: 
  Country: None (occurrence: None)
  Receive Date: 20091221
  Receipt Date: 20081124
  Transmission Date: 20100525
  Serious: No
  Sender: FDA-Public Use
  Company Number: US-ASTRAZENECA-2008UW26296

PATIENT
  Age: 73 Year
  Sex: Female
  Weight: 77.6 kg

DRUGS (2)
  1. CRESTOR [Suspect]
     Indication: HYPERCHOLESTEROLAEMIA
     Route: 048
     Dates: start: 20080630
  2. DYAZIDE [Concomitant]

REACTIONS (2)
  - LIMB DISCOMFORT [None]
  - MYALGIA [None]
